FAERS Safety Report 16251061 (Version 2)
Quarter: 2019Q2

REPORT INFORMATION
  Report Type: Spontaneous
  Country: JP (occurrence: JP)
  Receive Date: 20190429
  Receipt Date: 20190528
  Transmission Date: 20190711
  Serious: Yes (Death, Life-Threatening, Hospitalization)
  Sender: FDA-Public Use
  Company Number: JP-MYLANLABS-2019M1039815

PATIENT
  Age: 74 Year
  Sex: Female

DRUGS (4)
  1. PREDNISOLONE. [Suspect]
     Active Substance: PREDNISOLONE
     Indication: DERMATOMYOSITIS
     Route: 065
  2. CYCLOSPORIN A [Suspect]
     Active Substance: CYCLOSPORINE
     Indication: DERMATOMYOSITIS
     Dosage: 12 HRS IV ADMINISTRATION TO MAINTAIN 1000 NG/ML AT 2 HRS AND 200-300 NG/ML AT TROUGH LEVELS
     Route: 042
  3. CYCLOPHOSPHAMIDE. [Suspect]
     Active Substance: CYCLOPHOSPHAMIDE
     Indication: DERMATOMYOSITIS
     Dosage: 500-1000MG BIWEEKLY
     Route: 042
  4. TOFACITINIB [Suspect]
     Active Substance: TOFACITINIB
     Indication: DERMATOMYOSITIS
     Route: 065

REACTIONS (8)
  - Hepatic failure [Fatal]
  - Fungal infection [Unknown]
  - Shock [Fatal]
  - Pneumonia [Unknown]
  - Cytomegalovirus infection [Unknown]
  - Sepsis [Unknown]
  - Treatment failure [Recovering/Resolving]
  - Respiratory tract infection bacterial [Unknown]
